FAERS Safety Report 4497221-9 (Version None)
Quarter: 2004Q3

REPORT INFORMATION
  Report Type: 
  Country: None (occurrence: None)
  Receive Date: 20040927
  Receipt Date: 20040527
  Transmission Date: 20050211
  Serious: No
  Sender: FDA-Public Use
  Company Number: USA040568754

PATIENT
  Age: 52 Year
  Sex: Female
  Weight: 64 kg

DRUGS (2)
  1. STRATTERA [Suspect]
     Indication: ABNORMAL BEHAVIOUR
     Dosage: 80 MG DAY
     Dates: start: 20040401
  2. LORCET-HD [Concomitant]

REACTIONS (9)
  - AGGRESSION [None]
  - AGITATION [None]
  - CONSTIPATION [None]
  - DISTURBANCE IN ATTENTION [None]
  - DRUG EFFECT DECREASED [None]
  - LOSS OF LIBIDO [None]
  - SLEEP DISORDER [None]
  - TENSION [None]
  - VULVOVAGINAL DRYNESS [None]
